FAERS Safety Report 9526794 (Version 1)
Quarter: 2013Q3

REPORT INFORMATION
  Report Type: Spontaneous
  Country: JP (occurrence: JP)
  Receive Date: 20130916
  Receipt Date: 20130916
  Transmission Date: 20140515
  Serious: Yes (Hospitalization)
  Sender: FDA-Public Use
  Company Number: JP-GLAXOSMITHKLINE-B0915062A

PATIENT
  Age: 35 Year
  Sex: Female

DRUGS (7)
  1. LAMICTAL [Suspect]
     Indication: EPILEPSY
     Dosage: 25MG TWICE PER DAY
     Route: 048
     Dates: start: 20130726, end: 20130727
  2. TEGRETOL [Suspect]
     Indication: EPILEPSY
     Dosage: 400MG TWICE PER DAY
     Route: 048
     Dates: start: 20130710, end: 20130727
  3. BAKTAR [Concomitant]
     Indication: INFECTION PROPHYLAXIS
     Dosage: 1IUAX PER DAY
     Route: 048
     Dates: start: 20130713, end: 20130727
  4. TAKEPRON [Concomitant]
     Indication: PEPTIC ULCER
     Dosage: 15MG PER DAY
     Route: 048
     Dates: start: 20130712, end: 20130727
  5. PREDNISOLONE [Concomitant]
     Indication: ENCEPHALITIS
     Dosage: 40MG PER DAY
     Route: 048
     Dates: start: 20130713
  6. DIAZEPAM [Concomitant]
     Indication: SEDATIVE THERAPY
     Dosage: 1.5MG TWICE PER DAY
     Route: 048
     Dates: start: 20130718
  7. ALEVIATIN [Concomitant]
     Indication: EPILEPSY
     Route: 065
     Dates: start: 20130708, end: 20130722

REACTIONS (8)
  - Disseminated intravascular coagulation [Unknown]
  - Drug reaction with eosinophilia and systemic symptoms [Recovering/Resolving]
  - Pyrexia [Recovering/Resolving]
  - Rash generalised [Recovering/Resolving]
  - Hepatic function abnormal [Unknown]
  - Drug eruption [Recovering/Resolving]
  - Pigmentation disorder [Unknown]
  - Organ failure [Recovered/Resolved]
